APPROVED DRUG PRODUCT: BIVALIRUDIN
Active Ingredient: BIVALIRUDIN
Strength: 250MG/VIAL
Dosage Form/Route: INJECTABLE;INTRAVENOUS
Application: A202471 | Product #001 | TE Code: AP
Applicant: MYLAN INSTITUTIONAL LLC
Approved: Jun 1, 2018 | RLD: No | RS: No | Type: RX